FAERS Safety Report 7715963-6 (Version None)
Quarter: 2011Q3

REPORT INFORMATION
  Report Type: 
  Country: None (occurrence: None)
  Receive Date: 20110823
  Receipt Date: 20110809
  Transmission Date: 20111222
  Serious: Yes (Hospitalization)
  Sender: FDA-Public Use
  Company Number: 1000020671

PATIENT
  Sex: Female

DRUGS (3)
  1. BERODUAL (FENOTEROL) [Concomitant]
  2. ATROVENT [Concomitant]
  3. ESCITALOPRAM [Suspect]
     Indication: DEPRESSION

REACTIONS (5)
  - INSOMNIA [None]
  - ABDOMINAL PAIN [None]
  - BLOOD CHOLESTEROL INCREASED [None]
  - ABDOMINAL PAIN UPPER [None]
  - FATIGUE [None]
